FAERS Safety Report 23196672 (Version 1)
Quarter: 2023Q4

REPORT INFORMATION
  Report Type: Spontaneous
  Country: FR (occurrence: FR)
  Receive Date: 20231117
  Receipt Date: 20231117
  Transmission Date: 20240110
  Serious: Yes (Death, Other)
  Sender: FDA-Public Use
  Company Number: FR-JNJFOC-20231121423

PATIENT

DRUGS (4)
  1. TECVAYLI [Suspect]
     Active Substance: TECLISTAMAB-CQYV
     Indication: Plasma cell myeloma refractory
     Dosage: STEP-UP DOSES OF 0.06 MG/KG (DOSE 1)
     Route: 058
  2. TECVAYLI [Suspect]
     Active Substance: TECLISTAMAB-CQYV
     Dosage: 0.3 MG/KG (DOSE 2)
     Route: 058
  3. TECVAYLI [Suspect]
     Active Substance: TECLISTAMAB-CQYV
     Dosage: EVERY WEEK AT DOSE OF 1.5 MG/KG
     Route: 058
  4. DEXAMETHASONE [Concomitant]
     Active Substance: DEXAMETHASONE
     Indication: Premedication
     Dosage: STEP-UP DOSES AND FIRST FULL DOSE
     Route: 065

REACTIONS (3)
  - Sepsis [Fatal]
  - Bacteraemia [Unknown]
  - Pneumonia bacterial [Unknown]
